FAERS Safety Report 5506509-1 (Version None)
Quarter: 2007Q4

REPORT INFORMATION
  Report Type: 
  Country: None (occurrence: None)
  Receive Date: 20071105
  Receipt Date: 20071030
  Transmission Date: 20080405
  Serious: Yes (Hospitalization, Congenital Anomaly)
  Sender: FDA-Public Use
  Company Number: A0681144A

PATIENT
  Sex: Female
  Weight: 2.6 kg

DRUGS (4)
  1. PAXIL [Suspect]
     Dosage: 20MG UNKNOWN
     Dates: start: 20021226
  2. AMPICILLIN [Concomitant]
     Dates: start: 20021226
  3. BACTRIM DS [Concomitant]
     Dates: start: 20030408
  4. PYRIDIUM [Concomitant]
     Dates: start: 20030408

REACTIONS (27)
  - ADHESION [None]
  - ATELECTASIS [None]
  - ATRIAL SEPTAL DEFECT [None]
  - BRADYCARDIA [None]
  - CARDIAC ANEURYSM [None]
  - CARDIAC MURMUR [None]
  - CARDIOMEGALY [None]
  - CONGENITAL CARDIOVASCULAR ANOMALY [None]
  - CYANOSIS [None]
  - DIAPHRAGMATIC PARALYSIS [None]
  - DOUBLE OUTLET RIGHT VENTRICLE [None]
  - DRUG EXPOSURE DURING PREGNANCY [None]
  - HAEMOGLOBIN DECREASED [None]
  - HYPERNATRAEMIA [None]
  - HYPOTENSION [None]
  - OXYGEN SATURATION DECREASED [None]
  - PATENT DUCTUS ARTERIOSUS [None]
  - PLEURAL EFFUSION [None]
  - PULMONARY ARTERY STENOSIS [None]
  - PULMONARY OEDEMA [None]
  - RESPIRATORY FAILURE [None]
  - RIGHT VENTRICULAR HYPERTROPHY [None]
  - SKIN DISCOLOURATION [None]
  - STRIDOR [None]
  - TACHYPNOEA [None]
  - TRANSPOSITION OF THE GREAT VESSELS [None]
  - VENTRICULAR SEPTAL DEFECT [None]
